FAERS Safety Report 4801902-4 (Version None)
Quarter: 2005Q4

REPORT INFORMATION
  Report Type: 
  Country: None (occurrence: None)
  Receive Date: 20051012
  Receipt Date: 20050928
  Transmission Date: 20060501
  Serious: Yes (Death)
  Sender: FDA-Public Use
  Company Number: 218287

PATIENT
  Sex: Female

DRUGS (11)
  1. AVASTIN [Suspect]
     Indication: NON-SMALL CELL LUNG CANCER
     Dosage: 15 MG/KG, Q3W
     Dates: start: 20050628, end: 20050920
  2. CARBOPLATIN [Suspect]
     Indication: NON-SMALL CELL LUNG CANCER
     Dosage: 525 MG, Q3W
     Dates: start: 20050607, end: 20050920
  3. TAXOL [Suspect]
     Indication: NON-SMALL CELL LUNG CANCER
     Dosage: 200 MG/M2, Q3W
     Dates: start: 20050607, end: 20050920
  4. VITAMIN E [Concomitant]
  5. CALCIUM (CALCIUM NOS) [Concomitant]
  6. MULTIVITAMIN (MULTIVITAMINS NOS) [Concomitant]
  7. COUMADIN [Concomitant]
  8. GLUCOSAMINE/CHONDROITIN (GLUCOSAMINE, CHONDROITIN SULFATE) [Concomitant]
  9. COMPAZINE [Concomitant]
  10. ATIVAN [Concomitant]
  11. ZOFRAN [Concomitant]

REACTIONS (2)
  - EXSANGUINATION [None]
  - HAEMOPTYSIS [None]
